FAERS Safety Report 9976472 (Version 1)
Quarter: 2014Q1

REPORT INFORMATION
  Report Type: Report from Study
  Country: US (occurrence: US)
  Receive Date: 20140306
  Receipt Date: 20140306
  Transmission Date: 20141002
  Serious: No
  Sender: FDA-Public Use
  Company Number: US-ABBVIE-13P-163-1167334-00

PATIENT
  Age: 50 Year
  Sex: Female

DRUGS (5)
  1. HUMIRA [Suspect]
     Indication: PSORIATIC ARTHROPATHY
     Dosage: INITIAL DOSE
     Dates: start: 20131031
  2. METHOTREXATE [Concomitant]
     Indication: PSORIATIC ARTHROPATHY
  3. LEVOTHYROXINE [Concomitant]
     Indication: THYROID DISORDER
     Dosage: SMALLEST DOSE
  4. FOLIC ACID [Concomitant]
     Indication: PRODUCT USED FOR UNKNOWN INDICATION
  5. PAIN PILLS [Concomitant]
     Indication: PAIN

REACTIONS (2)
  - Cough [Not Recovered/Not Resolved]
  - Injection site haemorrhage [Recovered/Resolved]
